FAERS Safety Report 16842679 (Version 2)
Quarter: 2020Q1

REPORT INFORMATION
  Report Type: Spontaneous
  Country: AT (occurrence: AT)
  Receive Date: 20190924
  Receipt Date: 20200305
  Transmission Date: 20200409
  Serious: Yes (Other)
  Sender: FDA-Public Use
  Company Number: AT-ACCORD-155465

PATIENT
  Age: 74 Year
  Sex: Male

DRUGS (5)
  1. FOLINIC ACID [Concomitant]
     Active Substance: LEUCOVORIN
     Indication: ADENOCARCINOMA PANCREAS
     Dates: start: 201609, end: 201707
  2. ONIVYDE [Concomitant]
     Active Substance: IRINOTECAN HYDROCHLORIDE
     Indication: ADENOCARCINOMA PANCREAS
     Dates: start: 201609, end: 201707
  3. FLUOROURACIL. [Concomitant]
     Active Substance: FLUOROURACIL
     Indication: ADENOCARCINOMA PANCREAS
     Dates: start: 201609, end: 201707
  4. GEMCITABINE/GEMCITABINE HYDROCHLORIDE [Suspect]
     Active Substance: GEMCITABINE\GEMCITABINE HYDROCHLORIDE
     Indication: ADENOCARCINOMA PANCREAS
     Dosage: FIRST CYCLE DOSE REDUCED TO 80 PERCENT, SECOND CYCLE DOSE ESCALATED TO 100 PERCENT
     Dates: start: 201511
  5. PACLITAXEL. [Suspect]
     Active Substance: PACLITAXEL
     Indication: ADENOCARCINOMA PANCREAS
     Dosage: FIRST CYCLE DOSE REDUCED TO 80 PERCENT, SECOND CYCLE DOSE ESCALATED TO 100 PERCENT
     Dates: start: 201511

REACTIONS (2)
  - Neuropathy peripheral [Unknown]
  - Disease progression [Unknown]

NARRATIVE: CASE EVENT DATE: 201605
